FAERS Safety Report 7742892-4 (Version None)
Quarter: 2011Q3

REPORT INFORMATION
  Report Type: 
  Country: None (occurrence: None)
  Receive Date: 20110912
  Receipt Date: 20110830
  Transmission Date: 20111222
  Serious: Yes (Hospitalization)
  Sender: FDA-Public Use
  Company Number: DE-ELI_LILLY_AND_COMPANY-DE201108009176

PATIENT
  Age: 71 Year
  Sex: Female

DRUGS (4)
  1. VITAMIN D [Concomitant]
  2. INSULIN [Concomitant]
  3. CALCIUM CARBONATE [Concomitant]
  4. FORTEO [Suspect]
     Indication: OSTEOPOROSIS
     Dosage: UNK, QD
     Route: 058
     Dates: start: 20100528, end: 20110101

REACTIONS (4)
  - DIABETES MELLITUS INADEQUATE CONTROL [None]
  - BLOOD TEST ABNORMAL [None]
  - FEELING ABNORMAL [None]
  - IRON DEFICIENCY [None]
